FAERS Safety Report 4472453-4 (Version None)
Quarter: 2004Q4

REPORT INFORMATION
  Report Type: 
  Country: None (occurrence: None)
  Receive Date: 20041007
  Receipt Date: 20040924
  Transmission Date: 20050328
  Serious: Yes (Other)
  Sender: FDA-Public Use
  Company Number: HQWYE335127SEP04

PATIENT
  Age: 75 Year
  Sex: Male

DRUGS (6)
  1. PROTONIX [Suspect]
     Indication: GASTROINTESTINAL HAEMORRHAGE
     Dosage: 40 MG 1X PER 1 DAY, INTRAVENOUS
     Route: 042
     Dates: start: 20040922, end: 20040901
  2. LEVAQUIN [Suspect]
     Dosage: INTRAVENOUS
     Route: 042
     Dates: start: 20040922, end: 20040901
  3. ZOFRAN [Concomitant]
  4. LACTATED RINGER'S (CALCIUM CHLORIDE DIHYDRATE/POTASSIUM CHLORIDE/SODIU [Concomitant]
  5. ALTACE [Concomitant]
  6. PREDNISONE [Concomitant]

REACTIONS (4)
  - INFUSION SITE BURNING [None]
  - INJECTION SITE ERYTHEMA [None]
  - INJECTION SITE EXTRAVASATION [None]
  - INJECTION SITE VESICLES [None]
